FAERS Safety Report 8102560-6 (Version None)
Quarter: 2012Q1

REPORT INFORMATION
  Report Type: 
  Country: None (occurrence: None)
  Receive Date: 20120201
  Receipt Date: 20120117
  Transmission Date: 20120608
  Serious: Yes (Other)
  Sender: FDA-Public Use
  Company Number: CA-JNJFOC-20120112896

PATIENT
  Sex: Female
  Weight: 105.5 kg

DRUGS (2)
  1. REMICADE [Suspect]
     Indication: RHEUMATOID ARTHRITIS
     Route: 042
     Dates: start: 20111201
  2. REMICADE [Suspect]
     Route: 042

REACTIONS (2)
  - FALL [None]
  - UPPER LIMB FRACTURE [None]
